FAERS Safety Report 18026232 (Version 2)
Quarter: 2020Q3

REPORT INFORMATION
  Report Type: Report from Study
  Country: BE (occurrence: BE)
  Receive Date: 20200715
  Receipt Date: 20200730
  Transmission Date: 20201103
  Serious: Yes (Hospitalization)
  Sender: FDA-Public Use
  Company Number: NVSC2020BE198426

PATIENT
  Sex: Female

DRUGS (10)
  1. ACLASTA [Suspect]
     Active Substance: ZOLEDRONIC ACID
     Dosage: 5 MG, Q12MO (5 MG/100 ML)
     Route: 042
     Dates: start: 20160323
  2. ACLASTA [Suspect]
     Active Substance: ZOLEDRONIC ACID
     Dosage: 5 MG, Q12MO (5 MG/100 ML)
     Route: 042
     Dates: start: 20170330
  3. ACLASTA [Suspect]
     Active Substance: ZOLEDRONIC ACID
     Dosage: 5 MG, Q12MO (5 MG/100 ML)
     Route: 042
     Dates: start: 20120228
  4. ACLASTA [Suspect]
     Active Substance: ZOLEDRONIC ACID
     Indication: OSTEOPOROSIS
     Dosage: 5 MG, Q12MO (5 MG/100 ML)
     Route: 042
     Dates: start: 20110222
  5. ACLASTA [Suspect]
     Active Substance: ZOLEDRONIC ACID
     Dosage: 5 MG, Q12MO (5 MG/100 ML)
     Route: 042
     Dates: start: 20150312
  6. ACLASTA [Suspect]
     Active Substance: ZOLEDRONIC ACID
     Dosage: 5 MG, Q12MO (5 MG/100 ML)
     Route: 042
     Dates: start: 20170330
  7. ACLASTA [Suspect]
     Active Substance: ZOLEDRONIC ACID
     Dosage: 5 MG, Q12MO (5 MG/100 ML)
     Route: 042
     Dates: start: 20130228
  8. ACLASTA [Suspect]
     Active Substance: ZOLEDRONIC ACID
     Dosage: 5 MG, Q12MO (5 MG/100 ML)
     Route: 042
     Dates: start: 20190404
  9. ACLASTA [Suspect]
     Active Substance: ZOLEDRONIC ACID
     Dosage: 5 MG, Q12MO (5 MG/100 ML)
     Route: 042
     Dates: start: 20140311
  10. ACLASTA [Suspect]
     Active Substance: ZOLEDRONIC ACID
     Dosage: 5 MG, Q12MO (5 MG/100 ML)
     Route: 042
     Dates: start: 20180330

REACTIONS (1)
  - Pelvic fracture [Recovered/Resolved]
